FAERS Safety Report 26115982 (Version 1)
Quarter: 2025Q4

REPORT INFORMATION
  Report Type: Spontaneous
  Country: EU (occurrence: EU)
  Receive Date: 20251203
  Receipt Date: 20251203
  Transmission Date: 20260117
  Serious: Yes (Other)
  Sender: GENMAB
  Company Number: EU-ABBVIE-6568985

PATIENT
  Age: 81 Year

DRUGS (1)
  1. EPCORITAMAB [Suspect]
     Active Substance: EPCORITAMAB
     Indication: Diffuse large B-cell lymphoma
     Dosage: UNK
     Route: 058

REACTIONS (3)
  - Hepatic lesion [Unknown]
  - Diffuse large B-cell lymphoma [Unknown]
  - Respiratory disorder [Unknown]
